FAERS Safety Report 4981869-9 (Version None)
Quarter: 2006Q2

REPORT INFORMATION
  Report Type: 
  Country: None (occurrence: None)
  Receive Date: 20060425
  Receipt Date: 20060111
  Transmission Date: 20061013
  Serious: Yes (Hospitalization)
  Sender: FDA-Public Use
  Company Number: FRWYE293111JAN06

PATIENT
  Age: 40 Year
  Sex: Female

DRUGS (3)
  1. ENBREL [Suspect]
     Indication: RHEUMATOID ARTHRITIS
     Route: 058
     Dates: start: 20050201, end: 20051025
  2. METHOTREXATE [Concomitant]
     Route: 048
     Dates: start: 19980101, end: 20051025
  3. METHOTREXATE [Concomitant]
     Dates: start: 20051026

REACTIONS (5)
  - ANGIONEUROTIC OEDEMA [None]
  - BRONCHOSPASM [None]
  - DYSPNOEA [None]
  - HYPERSENSITIVITY [None]
  - LARYNGITIS [None]
